FAERS Safety Report 7777630 (Version 3)
Quarter: 2013Q4

REPORT INFORMATION
  Report Type: Spontaneous
  Country: US (occurrence: US)
  Receive Date: 20110128
  Receipt Date: 20131118
  Transmission Date: 20140711
  Serious: Yes (Other)
  Sender: FDA-Public Use
  Company Number: US-BAYER-201037997NA

PATIENT
  Age: 29 Year
  Sex: Female
  Weight: 83.9 kg

DRUGS (28)
  1. YAZ [Suspect]
     Indication: ACNE
     Dosage: UNK
     Dates: start: 2004
  2. YASMIN [Suspect]
     Indication: ACNE
     Dosage: UNK
  3. OCELLA [Suspect]
     Indication: ACNE
     Dosage: UNK
  4. AMOXICILLIN [Concomitant]
  5. FIORICET [Concomitant]
     Indication: PAIN
  6. FOLIC ACID [Concomitant]
  7. ALBUTEROL [Concomitant]
  8. BUSPAR [Concomitant]
     Indication: BIPOLAR DISORDER
  9. DEPAKOTE [Concomitant]
     Indication: BIPOLAR DISORDER
     Dosage: 500 UNK, UNK
  10. LEVBID [Concomitant]
     Indication: IRRITABLE BOWEL SYNDROME
     Dosage: 0.375 UNK, UNK
  11. NORTON [Concomitant]
     Indication: PAIN
  12. ZOLOFT [Concomitant]
     Indication: BIPOLAR DISORDER
     Dosage: 100 MG/24HR, UNK
  13. CORTICOSTEROIDS [Concomitant]
     Indication: UPPER RESPIRATORY TRACT INFECTION
  14. CERTA [Concomitant]
  15. PAXIL [Concomitant]
     Dosage: 500 MG, UNK
  16. TYLENOL [PARACETAMOL] [Concomitant]
     Dosage: UNK UNK, PRN
  17. ZANTAC [Concomitant]
     Dosage: 150 MG/24HR, UNK
  18. MULTIVITAMIN [Concomitant]
  19. HYOSCYAMINE [Concomitant]
  20. IBUPROFEN [Concomitant]
  21. DIPHENHYDRAMINE [Concomitant]
  22. MAALOX [Concomitant]
  23. CARAFATE [Concomitant]
  24. VICODIN [Concomitant]
     Dosage: UNK UNK, PRN
  25. NAPROXEN [Concomitant]
     Indication: PAIN
  26. DICYCLOMINE [Concomitant]
     Dosage: 20 MG, PRN
  27. CONCERTA [Concomitant]
  28. HYDROCODONE W/APAP [Concomitant]

REACTIONS (3)
  - Gallbladder disorder [None]
  - Scar [None]
  - Biliary dyskinesia [None]
